FAERS Safety Report 15206762 (Version 2)
Quarter: 2018Q3

REPORT INFORMATION
  Report Type: Spontaneous
  Country: US (occurrence: US)
  Receive Date: 20180727
  Receipt Date: 20180814
  Transmission Date: 20181010
  Serious: No
  Sender: FDA-Public Use
  Company Number: US-PFIZER INC-2018302042

PATIENT
  Age: 67 Year
  Sex: Male

DRUGS (2)
  1. GABAPENTIN. [Suspect]
     Active Substance: GABAPENTIN
     Dosage: 600 MG, 3X/DAY (INCREASED TO 600MG THREE TIMES A DAY)
  2. GABAPENTIN. [Suspect]
     Active Substance: GABAPENTIN
     Indication: DIABETIC NEUROPATHY
     Dosage: 600 MG, 2X/DAY (600MG TABLET TWICE DAY, MORNING AND EVENING)
     Route: 048
     Dates: start: 2016

REACTIONS (2)
  - Drug ineffective for unapproved indication [Unknown]
  - Fall [Unknown]

NARRATIVE: CASE EVENT DATE: 2016
